APPROVED DRUG PRODUCT: LACOSAMIDE
Active Ingredient: LACOSAMIDE
Strength: 150MG
Dosage Form/Route: TABLET;ORAL
Application: A204855 | Product #003
Applicant: ACTAVIS LABORATORIES FL INC
Approved: Jan 5, 2023 | RLD: No | RS: No | Type: DISCN